FAERS Safety Report 17722709 (Version 1)
Quarter: 2020Q2

REPORT INFORMATION
  Report Type: Spontaneous
  Country: DE (occurrence: DE)
  Receive Date: 20200429
  Receipt Date: 20200429
  Transmission Date: 20200714
  Serious: Yes (Congenital Anomaly, Other)
  Sender: FDA-Public Use
  Company Number: DE-SA-2020SA109055

PATIENT
  Sex: Male

DRUGS (2)
  1. CLEXANE [Suspect]
     Active Substance: ENOXAPARIN SODIUM
     Indication: PLASMINOGEN ACTIVATOR INHIBITOR POLYMORPHISM
     Dosage: 4000 IU
     Route: 064
     Dates: start: 20180901, end: 20190701
  2. L-THYROXINE [LEVOTHYROXINE SODIUM] [Concomitant]
     Active Substance: LEVOTHYROXINE SODIUM
     Indication: HYPOTHYROIDISM
     Dosage: 62.5 MICROGRAMS (INCREASED TO 75 MICROGRAMS FOR A FEW WEEKS A FEW WEEKS BEFORE DELIVERY
     Route: 064
     Dates: start: 20170502

REACTIONS (6)
  - Patent ductus arteriosus [Unknown]
  - Foetal exposure during pregnancy [Unknown]
  - Laryngomalacia [Recovering/Resolving]
  - Atrial septal defect [Unknown]
  - Croup infectious [Unknown]
  - Stridor [Unknown]
